FAERS Safety Report 21794167 (Version 1)
Quarter: 2022Q4

REPORT INFORMATION
  Report Type: Spontaneous
  Country: US (occurrence: US)
  Receive Date: 20221229
  Receipt Date: 20221229
  Transmission Date: 20230113
  Serious: No
  Sender: FDA-Public Use
  Company Number: US-GLAXOSMITHKLINE-USCH2022052285

PATIENT

DRUGS (1)
  1. GLYCERIN\SORBITOL [Suspect]
     Active Substance: GLYCERIN\SORBITOL
     Indication: Breath odour
     Dosage: UNK

REACTIONS (2)
  - Dysgeusia [Unknown]
  - Drug ineffective [Unknown]
